FAERS Safety Report 10667374 (Version 7)
Quarter: 2016Q3

REPORT INFORMATION
  Report Type: Spontaneous
  Country: US (occurrence: US)
  Receive Date: 20141222
  Receipt Date: 20160829
  Transmission Date: 20161109
  Serious: Yes (Disabling)
  Sender: FDA-Public Use
  Company Number: US-009507513-1110USA04072

PATIENT
  Sex: Male
  Weight: 81.63 kg

DRUGS (2)
  1. LEXAPRO [Suspect]
     Active Substance: ESCITALOPRAM OXALATE
     Indication: DEPRESSION
     Dosage: UNK, UNKNOWN
     Route: 048
     Dates: start: 20080513, end: 20080905
  2. PROPECIA [Suspect]
     Active Substance: FINASTERIDE
     Indication: ALOPECIA
     Dosage: 1 MG, QD
     Route: 048
     Dates: start: 2007, end: 2009

REACTIONS (40)
  - Premature ejaculation [Recovered/Resolved]
  - Flatulence [Unknown]
  - Nasal congestion [Unknown]
  - Injury [Unknown]
  - Palpitations [Unknown]
  - Blood pressure increased [Unknown]
  - Hypopituitarism [Unknown]
  - Anxiety [Not Recovered/Not Resolved]
  - Libido decreased [Not Recovered/Not Resolved]
  - Dry skin [Unknown]
  - Dependence [Unknown]
  - Muscle fatigue [Unknown]
  - Stress [Unknown]
  - Ear operation [Unknown]
  - Sexual dysfunction [Not Recovered/Not Resolved]
  - Semen volume decreased [Not Recovered/Not Resolved]
  - Abdominal distension [Unknown]
  - Muscular weakness [Unknown]
  - Memory impairment [Unknown]
  - Skin lesion [Unknown]
  - Somnolence [Unknown]
  - Frustration tolerance decreased [Unknown]
  - Testicular pain [Not Recovered/Not Resolved]
  - Migraine [Unknown]
  - Vision blurred [Unknown]
  - Irritability [Unknown]
  - Prostatic specific antigen increased [Unknown]
  - Visual impairment [Unknown]
  - Nasopharyngitis [Unknown]
  - Erectile dysfunction [Not Recovered/Not Resolved]
  - Fatigue [Not Recovered/Not Resolved]
  - Exposure to toxic agent [Unknown]
  - Wheezing [Unknown]
  - Cognitive disorder [Not Recovered/Not Resolved]
  - Cholelithiasis [Unknown]
  - Basilar migraine [Unknown]
  - Depression [Not Recovered/Not Resolved]
  - Hypogonadism [Unknown]
  - Fracture [Unknown]
  - Sedation [Unknown]

NARRATIVE: CASE EVENT DATE: 2007
